FAERS Safety Report 11167826 (Version 1)
Quarter: 2015Q2

REPORT INFORMATION
  Report Type: Spontaneous
  Country: US (occurrence: US)
  Receive Date: 20150605
  Receipt Date: 20150605
  Transmission Date: 20150821
  Serious: No
  Sender: FDA-Public Use
  Company Number: US-PFIZER INC-2015186809

PATIENT
  Age: 70 Year
  Sex: Female

DRUGS (3)
  1. ARIMIDEX [Suspect]
     Active Substance: ANASTROZOLE
     Dosage: UNK
  2. NAPROXEN/NAPROXEN SODIUM [Concomitant]
     Dosage: 500 MG, 2X/DAY
  3. EXEMESTANE. [Suspect]
     Active Substance: EXEMESTANE
     Dosage: UNK

REACTIONS (2)
  - Swollen tongue [Unknown]
  - Lip swelling [Unknown]
